FAERS Safety Report 13081966 (Version 5)
Quarter: 2017Q3

REPORT INFORMATION
  Report Type: Spontaneous
  Country: JP (occurrence: JP)
  Receive Date: 20170103
  Receipt Date: 20170807
  Transmission Date: 20171127
  Serious: Yes (Death, Hospitalization, Other)
  Sender: FDA-Public Use
  Company Number: JP-TAKEDA-2016MPI011110

PATIENT
  Age: 89 Year
  Sex: Male
  Weight: 50.1 kg

DRUGS (147)
  1. PREDNISOLONE. [Suspect]
     Active Substance: PREDNISOLONE
     Indication: PLASMA CELL MYELOMA
     Dosage: 65 MG, QD
     Route: 048
     Dates: start: 20151216, end: 20161114
  2. CYANOCOBALAMIN. [Concomitant]
     Active Substance: CYANOCOBALAMIN
     Indication: LUMBAR SPINAL STENOSIS
     Dosage: 0.25 MG, TID
     Route: 048
     Dates: end: 20160121
  3. MOHRUS [Concomitant]
     Active Substance: KETOPROFEN
     Indication: SPINAL COMPRESSION FRACTURE
     Dosage: 40 MG, UNK
     Route: 061
     Dates: end: 20151228
  4. BONOTEO [Concomitant]
     Active Substance: MINODRONIC ACID
     Indication: OSTEOPOROSIS
     Dosage: 50 MG, MONTHLY
     Route: 048
     Dates: start: 20151127, end: 20161220
  5. SULFAMETHOXAZOLE [Concomitant]
     Active Substance: SULFAMETHOXAZOLE
     Indication: ANTIFUNGAL PROPHYLAXIS
     Dosage: 400 MG, QD
     Route: 048
     Dates: start: 20151221, end: 20160409
  6. BFLUID [Concomitant]
     Active Substance: AMINO ACIDS\DEXTROSE\ELECTROLYTES NOS\VITAMINS
     Dosage: 1500 ML, QD
     Route: 042
     Dates: start: 20170115, end: 20170117
  7. BFLUID [Concomitant]
     Active Substance: AMINO ACIDS\DEXTROSE\ELECTROLYTES NOS\VITAMINS
     Dosage: 500 ML, QD
     Route: 042
     Dates: start: 20170125, end: 20170125
  8. LACTEC D                           /00895301/ [Concomitant]
     Indication: DECREASED APPETITE
     Dosage: 500 ML, QD
     Route: 042
     Dates: start: 20151224, end: 20151224
  9. LACTEC D                           /00895301/ [Concomitant]
     Dosage: 500 ML, QD
     Route: 042
     Dates: start: 20160414, end: 20160414
  10. MAGMITT [Concomitant]
     Active Substance: MAGNESIUM OXIDE
     Dosage: 330 MG, UNK
     Route: 048
     Dates: start: 20161226, end: 20170119
  11. CHLORHEXIDINE GLUCONATE. [Concomitant]
     Active Substance: CHLORHEXIDINE GLUCONATE
     Indication: SKIN ABRASION
     Dosage: UNK
     Route: 061
     Dates: start: 20160106, end: 20160109
  12. CHLORHEXIDINE GLUCONATE. [Concomitant]
     Active Substance: CHLORHEXIDINE GLUCONATE
     Dosage: UNK
     Route: 061
     Dates: start: 20160328, end: 20160509
  13. CALONAL [Concomitant]
     Active Substance: ACETAMINOPHEN
     Indication: SPINAL COMPRESSION FRACTURE
     Dosage: 400 MG, UNK
     Route: 048
     Dates: start: 20160219, end: 20160219
  14. LOXONIN [Concomitant]
     Active Substance: LOXOPROFEN SODIUM
     Dosage: 60 MG, UNK
     Route: 048
     Dates: start: 20160417, end: 20160417
  15. ELNEOPA NO.1 [Concomitant]
     Dosage: 1500 ML, QD
     Route: 042
     Dates: start: 20160118, end: 20170131
  16. GANCICLOVIR. [Concomitant]
     Active Substance: GANCICLOVIR
     Indication: CYTOMEGALOVIRUS INFECTION
     Dosage: 250 MG, BID
     Route: 042
     Dates: start: 20160118, end: 20160127
  17. BARAMYCIN                          /00037701/ [Concomitant]
     Indication: DECUBITUS ULCER
     Dosage: UNK
     Route: 061
     Dates: start: 20160321, end: 20160623
  18. BARAMYCIN                          /00037701/ [Concomitant]
     Indication: HERPES ZOSTER DISSEMINATED
     Dosage: UNK
     Route: 061
     Dates: start: 20160711, end: 20160911
  19. POLAPREZINC [Concomitant]
     Active Substance: POLAPREZINC
     Indication: ZINC DEFICIENCY
     Dosage: 75 MG, BID
     Route: 048
     Dates: start: 20161227, end: 20170119
  20. LANDSEN [Concomitant]
     Active Substance: CLONAZEPAM
     Indication: ESSENTIAL TREMOR
     Dosage: 0.2 G, BID
     Route: 048
     Dates: end: 20151210
  21. LANDSEN [Concomitant]
     Active Substance: CLONAZEPAM
     Dosage: 0.2 G, BID
     Route: 048
     Dates: start: 20151211, end: 20160115
  22. TRAMADOL HYDROCHLORIDE. [Concomitant]
     Active Substance: TRAMADOL HYDROCHLORIDE
     Indication: SPINAL COMPRESSION FRACTURE
     Dosage: 37.5 MG, TID
     Route: 048
     Dates: end: 20160115
  23. BIO-THREE [Concomitant]
     Active Substance: HERBALS
     Dosage: UNK
     Route: 048
     Dates: start: 20170121, end: 20170121
  24. PERAPRIN [Concomitant]
     Active Substance: METOCLOPRAMIDE
     Indication: NAUSEA
     Dosage: 5 MG, UNK
     Route: 048
     Dates: start: 20151221, end: 20151221
  25. VITAMEDIN INTRAVENOUS [Concomitant]
     Active Substance: CYANOCOBALAMIN\PYRIDOXINE HYDROCHLORIDE\THIAMINE
     Dosage: UNK UNK, QD
     Route: 042
     Dates: start: 20160111, end: 20160111
  26. VITAMEDIN INTRAVENOUS [Concomitant]
     Active Substance: CYANOCOBALAMIN\PYRIDOXINE HYDROCHLORIDE\THIAMINE
     Dosage: UNK UNK, QD
     Route: 042
     Dates: start: 20160113, end: 20160114
  27. NORMAL SALINE [Concomitant]
     Active Substance: SODIUM CHLORIDE
     Indication: LOSS OF CONSCIOUSNESS
     Dosage: 500 ML, BID
     Route: 042
     Dates: start: 20160101, end: 20160103
  28. CHLORHEXIDINE GLUCONATE. [Concomitant]
     Active Substance: CHLORHEXIDINE GLUCONATE
     Dosage: UNK
     Route: 061
     Dates: start: 20160520
  29. ACETAMINOPHEN. [Concomitant]
     Active Substance: ACETAMINOPHEN
     Indication: VIRAL UPPER RESPIRATORY TRACT INFECTION
     Dosage: 150 MG, TID
     Route: 048
     Dates: start: 20160109, end: 20160111
  30. ANHYDROUS CAFFEINE [Concomitant]
     Active Substance: CAFFEINE
     Indication: VIRAL UPPER RESPIRATORY TRACT INFECTION
     Dosage: 60 MG, TID
     Route: 048
     Dates: start: 20160109, end: 20160111
  31. XYLOCAINE [Concomitant]
     Active Substance: LIDOCAINE HYDROCHLORIDE
     Dosage: UNK
     Route: 061
     Dates: start: 20170125, end: 20170125
  32. ELNEOPA NO.1 [Concomitant]
     Dosage: 1500 ML, QD
     Route: 042
     Dates: start: 20160115, end: 20160117
  33. ELNEOPA NO.1 [Concomitant]
     Dosage: 1500 ML, QD
     Route: 042
     Dates: start: 20170125, end: 20170126
  34. OCTOTIAMINE [Concomitant]
     Active Substance: OCTOTIAMINE
     Indication: LUMBAR SPINAL STENOSIS
     Dosage: 25 MG, TID
     Route: 048
     Dates: end: 20160121
  35. BIOFERMIN                          /07958301/ [Concomitant]
     Indication: ENTEROCOLITIS
     Dosage: UNK, TID
     Route: 048
     Dates: end: 20151208
  36. LIMAPROST ALFADEX [Concomitant]
     Active Substance: LIMAPROST
     Indication: LUMBAR SPINAL STENOSIS
     Dosage: 5 ?G, TID
     Route: 048
     Dates: start: 20151208, end: 20160121
  37. AZUNOL                             /00317302/ [Concomitant]
     Indication: INFECTION PROPHYLAXIS
     Dosage: UNK
     Route: 065
     Dates: start: 20151216, end: 20160930
  38. BIO-THREE [Concomitant]
     Active Substance: HERBALS
     Indication: ANTIDIARRHOEAL SUPPORTIVE CARE
     Dosage: UNK, TID
     Route: 048
     Dates: start: 20151220, end: 20151230
  39. BFLUID [Concomitant]
     Active Substance: AMINO ACIDS\DEXTROSE\ELECTROLYTES NOS\VITAMINS
     Indication: DECREASED APPETITE
     Dosage: 500 ML, QD
     Route: 042
     Dates: start: 20151223, end: 20151223
  40. VITAMEDIN INTRAVENOUS [Concomitant]
     Active Substance: CYANOCOBALAMIN\PYRIDOXINE HYDROCHLORIDE\THIAMINE
     Dosage: UNK UNK, QD
     Route: 042
     Dates: start: 20160111, end: 20160111
  41. VITAMEDIN INTRAVENOUS [Concomitant]
     Active Substance: CYANOCOBALAMIN\PYRIDOXINE HYDROCHLORIDE\THIAMINE
     Dosage: UNK UNK, QD
     Route: 042
     Dates: start: 20160113, end: 20160114
  42. MAGMITT [Concomitant]
     Active Substance: MAGNESIUM OXIDE
     Indication: CONSTIPATION
     Dosage: 330 MG, UNK
     Route: 048
     Dates: start: 20160104, end: 20160930
  43. CHLORHEXIDINE GLUCONATE. [Concomitant]
     Active Substance: CHLORHEXIDINE GLUCONATE
     Dosage: UNK
     Route: 061
     Dates: start: 20160328, end: 20160509
  44. CALONAL [Concomitant]
     Active Substance: ACETAMINOPHEN
     Indication: INFLUENZA
     Dosage: 400 MG, UNK
     Route: 048
     Dates: start: 20160220, end: 20160311
  45. CALONAL [Concomitant]
     Active Substance: ACETAMINOPHEN
     Indication: URINARY TRACT INFECTION
     Dosage: 400 MG, UNK
     Route: 048
     Dates: start: 20160223, end: 20160224
  46. SALICYLAMIDE [Concomitant]
     Active Substance: SALICYLAMIDE
     Indication: VIRAL UPPER RESPIRATORY TRACT INFECTION
     Dosage: 270 MG, TID
     Route: 048
     Dates: start: 20160109, end: 20160111
  47. LOXONIN [Concomitant]
     Active Substance: LOXOPROFEN SODIUM
     Dosage: 60 MG, UNK
     Route: 048
     Dates: start: 20160417, end: 20160417
  48. XYLOCAINE [Concomitant]
     Active Substance: LIDOCAINE HYDROCHLORIDE
     Dosage: UNK
     Route: 061
     Dates: start: 20160115, end: 20160115
  49. ELNEOPA NO.1 [Concomitant]
     Dosage: 1500 ML, QD
     Route: 042
     Dates: start: 20160118, end: 20160131
  50. PROPETO [Concomitant]
     Indication: SKIN EROSION
     Dosage: UNK, QD
     Route: 061
     Dates: start: 20161003
  51. EKSALB [Concomitant]
     Indication: SKIN EROSION
     Dosage: UNK
     Route: 061
     Dates: start: 20161024, end: 20161225
  52. POLAPREZINC [Concomitant]
     Active Substance: POLAPREZINC
     Dosage: 75 MG, UNK
     Route: 048
     Dates: start: 20170121, end: 20170121
  53. DARATUMUMAB [Suspect]
     Active Substance: DARATUMUMAB
     Indication: PLASMA CELL MYELOMA
     Dosage: 864 MG, Q3WEEKS
     Route: 042
     Dates: start: 20151215, end: 20161114
  54. PURSENNID                          /00571902/ [Concomitant]
     Active Substance: SENNOSIDES A AND B
     Indication: CONSTIPATION
     Dosage: 24 MG, UNK
     Route: 048
     Dates: end: 20151218
  55. FEBURIC [Concomitant]
     Active Substance: FEBUXOSTAT
     Indication: HYPERURICAEMIA
     Dosage: 40 MG, QD
     Route: 048
     Dates: end: 20160115
  56. DAIKENCHUTO [Concomitant]
     Active Substance: HERBALS
     Indication: CONSTIPATION
     Dosage: 2.5 G, UNK
     Route: 048
     Dates: end: 20151218
  57. URIMOX [Concomitant]
     Indication: DRY SKIN
     Dosage: UNK
     Route: 061
     Dates: start: 20151202
  58. TELEMINSOFT [Concomitant]
     Active Substance: BISACODYL
     Indication: CONSTIPATION
     Dosage: 10 MG, UNK
     Route: 054
     Dates: start: 20151208, end: 20151208
  59. BIO-THREE [Concomitant]
     Active Substance: HERBALS
     Indication: DIARRHOEA
     Dosage: UNK, TID
     Route: 048
     Dates: start: 20160219, end: 20160221
  60. ZOVIRAX [Concomitant]
     Active Substance: ACYCLOVIR
     Indication: ANTIVIRAL PROPHYLAXIS
     Dosage: 200 MG, QD
     Route: 048
     Dates: start: 20151221, end: 20160215
  61. SOLYUGEN F [Concomitant]
     Indication: DIARRHOEA
     Dosage: 500 ML, UNK
     Route: 042
     Dates: start: 20151220, end: 20151220
  62. BFLUID [Concomitant]
     Active Substance: AMINO ACIDS\DEXTROSE\ELECTROLYTES NOS\VITAMINS
     Dosage: 1000 ML, QD
     Route: 042
     Dates: start: 20160113, end: 20160114
  63. BFLUID [Concomitant]
     Active Substance: AMINO ACIDS\DEXTROSE\ELECTROLYTES NOS\VITAMINS
     Dosage: 500 ML, QD
     Route: 042
     Dates: start: 20170106, end: 20170114
  64. BFLUID [Concomitant]
     Active Substance: AMINO ACIDS\DEXTROSE\ELECTROLYTES NOS\VITAMINS
     Dosage: 500 ML, QD
     Route: 042
     Dates: start: 20170118, end: 20170119
  65. VITAMEDIN INTRAVENOUS [Concomitant]
     Active Substance: CYANOCOBALAMIN\PYRIDOXINE HYDROCHLORIDE\THIAMINE
     Indication: PROPHYLAXIS AGAINST DEHYDRATION
     Dosage: UNK UNK, QD
     Route: 042
     Dates: start: 20151221, end: 20151221
  66. SENNOSIDE                          /00571902/ [Concomitant]
     Active Substance: SENNOSIDES A AND B
     Dosage: UNK
     Route: 048
     Dates: start: 20160606, end: 20160606
  67. CALONAL [Concomitant]
     Active Substance: ACETAMINOPHEN
     Indication: CONTUSION
     Dosage: 400 MG, UNK
     Route: 048
     Dates: start: 20160108, end: 20160122
  68. CALONAL [Concomitant]
     Active Substance: ACETAMINOPHEN
     Indication: CYTOMEGALOVIRUS INFECTION
     Dosage: 200 MG, QD
     Route: 048
     Dates: start: 20161205, end: 20161206
  69. LOXONIN [Concomitant]
     Active Substance: LOXOPROFEN SODIUM
     Indication: ABDOMINAL TENDERNESS
     Dosage: 60 MG, UNK
     Route: 048
     Dates: start: 20160111, end: 20160111
  70. XYLOCAINE [Concomitant]
     Active Substance: LIDOCAINE HYDROCHLORIDE
     Indication: CENTRAL VENOUS CATHETERISATION
     Dosage: UNK
     Route: 061
     Dates: start: 20160302, end: 20160302
  71. XYLOCAINE [Concomitant]
     Active Substance: LIDOCAINE HYDROCHLORIDE
     Dosage: UNK
     Route: 061
     Dates: start: 20160302, end: 20160302
  72. XYLOCAINE [Concomitant]
     Active Substance: LIDOCAINE HYDROCHLORIDE
     Dosage: UNK
     Route: 061
     Dates: start: 20170125, end: 20170125
  73. FUROSEMIDE. [Concomitant]
     Active Substance: FUROSEMIDE
     Dosage: 20 MG, QD
     Route: 042
     Dates: start: 20160125, end: 20160127
  74. BROTIZOLAM [Concomitant]
     Active Substance: BROTIZOLAM
     Indication: INSOMNIA
     Dosage: 0.25 MG, UNK
     Route: 048
     Dates: start: 20160124, end: 20160124
  75. KETOPROFEN. [Concomitant]
     Active Substance: KETOPROFEN
     Indication: LUMBAR SPINAL STENOSIS
     Dosage: 40 MG, UNK
     Route: 061
     Dates: start: 20160206
  76. FLOMAX [Concomitant]
     Active Substance: TAMSULOSIN HYDROCHLORIDE
     Indication: HERPES ZOSTER DISSEMINATED
     Dosage: 100 MG, TID
     Route: 048
     Dates: start: 20160514, end: 20160517
  77. HUMULIN R [Concomitant]
     Active Substance: INSULIN HUMAN
     Indication: PROPHYLAXIS
     Dosage: UNK, QD
     Route: 042
     Dates: start: 20170125, end: 20170126
  78. VELCADE [Suspect]
     Active Substance: BORTEZOMIB
     Dosage: 1.5 MG, 1/WEEK
     Route: 058
     Dates: start: 20161128
  79. BIOFERMIN                          /07958301/ [Concomitant]
     Indication: PROPHYLAXIS
     Dosage: UNK, TID
     Route: 048
     Dates: end: 20151208
  80. CEFTRIAXONE NA [Concomitant]
     Active Substance: CEFTRIAXONE
     Indication: BRONCHITIS
     Dosage: 2 G, QD
     Route: 042
     Dates: start: 20151204, end: 20151210
  81. TELEMINSOFT [Concomitant]
     Active Substance: BISACODYL
     Dosage: 10 MG, UNK
     Route: 054
     Dates: start: 20160102, end: 20160107
  82. ZOVIRAX [Concomitant]
     Active Substance: ACYCLOVIR
     Dosage: 200 MG, QD
     Route: 048
     Dates: start: 20170121, end: 20170121
  83. BFLUID [Concomitant]
     Active Substance: AMINO ACIDS\DEXTROSE\ELECTROLYTES NOS\VITAMINS
     Dosage: 1000 ML, QD
     Route: 042
     Dates: start: 20161221, end: 20161226
  84. VITAMEDIN INTRAVENOUS [Concomitant]
     Active Substance: CYANOCOBALAMIN\PYRIDOXINE HYDROCHLORIDE\THIAMINE
     Indication: DECREASED APPETITE
     Dosage: UNK UNK, QD
     Route: 042
     Dates: start: 20151221, end: 20151221
  85. VITAMEDIN INTRAVENOUS [Concomitant]
     Active Substance: CYANOCOBALAMIN\PYRIDOXINE HYDROCHLORIDE\THIAMINE
     Dosage: UNK UNK, QD
     Route: 042
     Dates: start: 20160111, end: 20160111
  86. LACTEC D                           /00895301/ [Concomitant]
     Indication: DIARRHOEA
     Dosage: 500 ML, QD
     Route: 042
     Dates: start: 20160112, end: 20160112
  87. LOPERAMIDE HYDROCHLORIDE. [Concomitant]
     Active Substance: LOPERAMIDE HYDROCHLORIDE
     Dosage: 1 MG, UNK
     Route: 048
     Dates: start: 20160105, end: 20160109
  88. K-SUPPLY [Concomitant]
     Active Substance: POTASSIUM CHLORIDE
     Indication: HYPOKALAEMIA
     Dosage: 600 MG, BID
     Route: 048
     Dates: start: 20160105, end: 20160112
  89. CALONAL [Concomitant]
     Active Substance: ACETAMINOPHEN
     Indication: INCISION SITE PAIN
     Dosage: 200 MG, UNK
     Route: 048
     Dates: start: 20161108, end: 20161108
  90. ELNEOPA NO.1 [Concomitant]
     Indication: DECREASED APPETITE
     Dosage: 1500 ML, QD
     Route: 042
     Dates: start: 20160115, end: 20160117
  91. ELNEOPA NO.1 [Concomitant]
     Indication: MARASMUS
     Dosage: 1500 ML, QD
     Route: 042
     Dates: start: 20160118, end: 20160131
  92. FUROSEMIDE. [Concomitant]
     Active Substance: FUROSEMIDE
     Indication: PLEURAL EFFUSION
     Dosage: 20 MG, QD
     Route: 042
     Dates: start: 20160121, end: 20160123
  93. DAIPHEN [Concomitant]
     Active Substance: SULFAMETHOXAZOLE\TRIMETHOPRIM
     Indication: ANTIFUNGAL PROPHYLAXIS
     Dosage: UNK UNK, QD
     Route: 048
     Dates: start: 20160418, end: 20170119
  94. RINDERON VG [Concomitant]
     Active Substance: BETAMETHASONE VALERATE\GENTAMICIN SULFATE
     Indication: HERPES ZOSTER DISSEMINATED
     Dosage: UNK
     Route: 061
     Dates: start: 20160514, end: 20160514
  95. TRAMCET [Concomitant]
     Active Substance: ACETAMINOPHEN\TRAMADOL
     Indication: CONTUSION
     Dosage: UNK, TID
     Route: 048
     Dates: start: 20160524, end: 20160608
  96. GENINAX [Concomitant]
     Active Substance: GARENOXACIN MESYLATE
     Indication: PNEUMONIA
     Dosage: 400 MG, QD
     Route: 048
     Dates: start: 20161114, end: 20161120
  97. VELCADE [Suspect]
     Active Substance: BORTEZOMIB
     Indication: PLASMA CELL MYELOMA
     Dosage: 1.5 MG, 1/WEEK
     Route: 058
     Dates: start: 20151215, end: 20161114
  98. DARATUMUMAB [Suspect]
     Active Substance: DARATUMUMAB
     Dosage: 864 MG, Q3WEEKS
     Route: 042
     Dates: start: 20161128
  99. MELPHALAN. [Suspect]
     Active Substance: MELPHALAN
     Indication: PLASMA CELL MYELOMA
     Dosage: 10 MG, QD
     Route: 048
     Dates: start: 20151215, end: 20161114
  100. MELPHALAN. [Suspect]
     Active Substance: MELPHALAN
     Dosage: 10 MG, QD
     Route: 048
     Dates: start: 20161128
  101. DAIKENCHUTO [Concomitant]
     Active Substance: HERBALS
     Dosage: 2.5 G, UNK
     Route: 048
     Dates: start: 20160102, end: 20160121
  102. ACETAMINOPHEN. [Concomitant]
     Active Substance: ACETAMINOPHEN
     Indication: SPINAL COMPRESSION FRACTURE
     Dosage: 325 MG, TID
     Route: 048
     Dates: end: 20160115
  103. BIO-THREE [Concomitant]
     Active Substance: HERBALS
     Dosage: UNK, TID
     Route: 048
     Dates: start: 20160222, end: 20160223
  104. BIO-THREE [Concomitant]
     Active Substance: HERBALS
     Dosage: UNK
     Route: 048
     Dates: start: 20161222, end: 20170119
  105. TRIMETHOPRIM. [Concomitant]
     Active Substance: TRIMETHOPRIM
     Indication: ANTIFUNGAL PROPHYLAXIS
     Dosage: 80 MG, QD
     Route: 048
     Dates: start: 20151221, end: 20160409
  106. BFLUID [Concomitant]
     Active Substance: AMINO ACIDS\DEXTROSE\ELECTROLYTES NOS\VITAMINS
     Indication: PROPHYLAXIS AGAINST DEHYDRATION
     Dosage: 1000 ML, QD
     Route: 042
     Dates: start: 20151221, end: 20151221
  107. LOPERAMIDE HYDROCHLORIDE. [Concomitant]
     Active Substance: LOPERAMIDE HYDROCHLORIDE
     Indication: ANTIDIARRHOEAL SUPPORTIVE CARE
     Dosage: 1 MG, BID
     Route: 048
     Dates: start: 20151225, end: 20151227
  108. CALONAL [Concomitant]
     Active Substance: ACETAMINOPHEN
     Indication: PYREXIA
     Dosage: 200 MG, QD
     Route: 048
     Dates: start: 20161205, end: 20161206
  109. LOXONIN [Concomitant]
     Active Substance: LOXOPROFEN SODIUM
     Indication: PYREXIA
     Dosage: 60 MG, UNK
     Route: 048
     Dates: start: 20160111, end: 20160111
  110. XYLOCAINE [Concomitant]
     Active Substance: LIDOCAINE HYDROCHLORIDE
     Dosage: UNK
     Route: 061
     Dates: start: 20170125, end: 20170125
  111. TRAMCET [Concomitant]
     Active Substance: ACETAMINOPHEN\TRAMADOL
     Indication: HERPES ZOSTER DISSEMINATED
     Dosage: UNK, QID
     Route: 048
     Dates: start: 20161108, end: 20161114
  112. HUMULIN R [Concomitant]
     Active Substance: INSULIN HUMAN
     Dosage: UNK, QD
     Route: 042
     Dates: start: 20170127
  113. RIBOFLAVIN [Concomitant]
     Active Substance: RIBOFLAVIN
     Indication: LUMBAR SPINAL STENOSIS
     Dosage: 2.5 MG, TID
     Route: 048
     Dates: end: 20160121
  114. NAUZELIN [Concomitant]
     Active Substance: DOMPERIDONE
     Indication: PROPHYLAXIS OF NAUSEA AND VOMITING
     Dosage: 0.5 G, BID
     Route: 048
     Dates: end: 20151208
  115. BIO-THREE [Concomitant]
     Active Substance: HERBALS
     Dosage: UNK, TID
     Route: 048
     Dates: start: 20160611, end: 20160613
  116. ZOVIRAX [Concomitant]
     Active Substance: ACYCLOVIR
     Dosage: 200 MG, QD
     Route: 048
     Dates: start: 20160531, end: 20170119
  117. BFLUID [Concomitant]
     Active Substance: AMINO ACIDS\DEXTROSE\ELECTROLYTES NOS\VITAMINS
     Dosage: 1500 ML, QD
     Route: 042
     Dates: start: 20170120, end: 20170124
  118. VITAMEDIN INTRAVENOUS [Concomitant]
     Active Substance: CYANOCOBALAMIN\PYRIDOXINE HYDROCHLORIDE\THIAMINE
     Dosage: UNK UNK, QD
     Route: 042
     Dates: start: 20151223, end: 20151223
  119. VITAMEDIN INTRAVENOUS [Concomitant]
     Active Substance: CYANOCOBALAMIN\PYRIDOXINE HYDROCHLORIDE\THIAMINE
     Dosage: UNK UNK, QD
     Route: 042
     Dates: start: 20151223, end: 20151223
  120. LACTEC D                           /00895301/ [Concomitant]
     Dosage: 500 ML, QD
     Route: 042
     Dates: start: 20161207, end: 20161207
  121. LOPERAMIDE HYDROCHLORIDE. [Concomitant]
     Active Substance: LOPERAMIDE HYDROCHLORIDE
     Dosage: 1 MG, BID
     Route: 048
     Dates: start: 20160215, end: 20160217
  122. LOPERAMIDE HYDROCHLORIDE. [Concomitant]
     Active Substance: LOPERAMIDE HYDROCHLORIDE
     Dosage: 1 MG, BID
     Route: 048
     Dates: start: 20160308, end: 20160310
  123. CHLORHEXIDINE GLUCONATE. [Concomitant]
     Active Substance: CHLORHEXIDINE GLUCONATE
     Dosage: UNK
     Route: 061
     Dates: start: 20160520
  124. CALONAL [Concomitant]
     Active Substance: ACETAMINOPHEN
     Indication: VIRAL UPPER RESPIRATORY TRACT INFECTION
     Dosage: UNK
     Dates: start: 20160109, end: 20160111
  125. PROMETHAZINE METHYLENEDISALICYLATE [Concomitant]
     Active Substance: PROMETHAZINE METHYLENEDISALICYLATE
     Indication: VIRAL UPPER RESPIRATORY TRACT INFECTION
     Dosage: 13.5 MG, TID
     Route: 048
     Dates: start: 20160109, end: 20160111
  126. XYLOCAINE [Concomitant]
     Active Substance: LIDOCAINE HYDROCHLORIDE
     Indication: BIOPSY BONE MARROW
     Dosage: UNK
     Route: 061
     Dates: start: 20160115, end: 20160115
  127. XYLOCAINE [Concomitant]
     Active Substance: LIDOCAINE HYDROCHLORIDE
     Dosage: UNK
     Route: 061
     Dates: start: 20170201, end: 20170201
  128. SODIUM CHLORIDE. [Concomitant]
     Active Substance: SODIUM CHLORIDE
     Dosage: 2 G, QD
     Route: 042
     Dates: start: 20160125, end: 20160127
  129. TRAMCET [Concomitant]
     Active Substance: ACETAMINOPHEN\TRAMADOL
     Dosage: UNK, BID
     Route: 048
     Dates: start: 20161115, end: 20161126
  130. PREDNISOLONE. [Suspect]
     Active Substance: PREDNISOLONE
     Dosage: 65 MG, QD
     Route: 048
     Dates: start: 20161128
  131. PYRIDOXINE HYDROCHLORIDE. [Concomitant]
     Active Substance: PYRIDOXINE HYDROCHLORIDE
     Indication: LUMBAR SPINAL STENOSIS
     Dosage: 40 MG, TID
     Route: 048
     Dates: end: 20160121
  132. VITAMINS NOS [Concomitant]
     Active Substance: VITAMINS
     Indication: LUMBAR SPINAL STENOSIS
     Dosage: 5 ?G, TID
     Route: 048
     Dates: end: 20151207
  133. ZOFRAN [Concomitant]
     Active Substance: ONDANSETRON HYDROCHLORIDE
     Indication: PROPHYLAXIS OF NAUSEA AND VOMITING
     Dosage: 4 MG, UNK
     Route: 048
     Dates: start: 20151215, end: 20161201
  134. BFLUID [Concomitant]
     Active Substance: AMINO ACIDS\DEXTROSE\ELECTROLYTES NOS\VITAMINS
     Indication: DIARRHOEA
     Dosage: 1500 ML, QD
     Route: 042
     Dates: start: 20161227, end: 20170105
  135. BFLUID [Concomitant]
     Active Substance: AMINO ACIDS\DEXTROSE\ELECTROLYTES NOS\VITAMINS
     Indication: MALNUTRITION
     Dosage: 1000 ML, QD
     Route: 042
     Dates: start: 20160111, end: 20160111
  136. VITAMEDIN INTRAVENOUS [Concomitant]
     Active Substance: CYANOCOBALAMIN\PYRIDOXINE HYDROCHLORIDE\THIAMINE
     Indication: DIARRHOEA
     Dosage: UNK UNK, QD
     Route: 042
     Dates: start: 20151221, end: 20151221
  137. VITAMEDIN INTRAVENOUS [Concomitant]
     Active Substance: CYANOCOBALAMIN\PYRIDOXINE HYDROCHLORIDE\THIAMINE
     Dosage: UNK UNK, QD
     Route: 042
     Dates: start: 20151223, end: 20151223
  138. VITAMEDIN INTRAVENOUS [Concomitant]
     Active Substance: CYANOCOBALAMIN\PYRIDOXINE HYDROCHLORIDE\THIAMINE
     Dosage: UNK UNK, QD
     Route: 042
     Dates: start: 20160113, end: 20160114
  139. LOPERAMIDE HYDROCHLORIDE. [Concomitant]
     Active Substance: LOPERAMIDE HYDROCHLORIDE
     Dosage: 1 MG, BID
     Route: 048
     Dates: start: 20160223, end: 20160224
  140. SENNOSIDE                          /00571902/ [Concomitant]
     Active Substance: SENNOSIDES A AND B
     Indication: CONSTIPATION
     Dosage: 12 MG, UNK
     Route: 048
     Dates: start: 20151230, end: 20160102
  141. CHLORHEXIDINE GLUCONATE. [Concomitant]
     Active Substance: CHLORHEXIDINE GLUCONATE
     Indication: SKIN EROSION
     Dosage: UNK
     Route: 061
     Dates: start: 20160106, end: 20160109
  142. ELNEOPA NO.1 [Concomitant]
     Dosage: 1500 ML, QD
     Route: 042
     Dates: start: 20170125, end: 20170126
  143. SODIUM CHLORIDE. [Concomitant]
     Active Substance: SODIUM CHLORIDE
     Indication: HYPONATRAEMIA
     Dosage: 4 G, QD
     Route: 042
     Dates: start: 20160118, end: 20160124
  144. VALIXA [Concomitant]
     Active Substance: VALGANCICLOVIR
     Indication: ANTIVIRAL PROPHYLAXIS
     Dosage: 450 MG, QD
     Route: 048
     Dates: start: 20160216, end: 20160409
  145. LEVOFLOXACIN. [Concomitant]
     Active Substance: LEVOFLOXACIN
     Indication: URINARY TRACT INFECTION
     Dosage: 500 MG, QD
     Route: 048
     Dates: start: 20160219, end: 20160223
  146. BARAMYCIN                          /00037701/ [Concomitant]
     Indication: PERICHONDRITIS
     Dosage: UNK, QD
     Route: 061
     Dates: start: 20161128, end: 20161218
  147. BARAMYCIN                          /00037701/ [Concomitant]
     Dosage: UNK
     Route: 061
     Dates: start: 20161226

REACTIONS (27)
  - Skin abrasion [Unknown]
  - Nasopharyngitis [Unknown]
  - Pleural effusion [Unknown]
  - Insomnia [Unknown]
  - Influenza [Unknown]
  - Skin erosion [Unknown]
  - Haemorrhage subcutaneous [Unknown]
  - Cytomegalovirus infection [Unknown]
  - Hypokalaemia [Unknown]
  - Loss of consciousness [Unknown]
  - Decubitus ulcer [Not Recovered/Not Resolved]
  - Fall [Unknown]
  - Herpes zoster disseminated [Unknown]
  - Orthostatic intolerance [Unknown]
  - Diarrhoea [Unknown]
  - Incision site pain [Unknown]
  - Platelet count decreased [Unknown]
  - Abdominal tenderness [Unknown]
  - Hyponatraemia [Unknown]
  - Pneumonia [Fatal]
  - Bone pain [Unknown]
  - Pyrexia [Recovered/Resolved]
  - Nausea [Unknown]
  - Perichondritis [Unknown]
  - Decreased appetite [Recovering/Resolving]
  - Malnutrition [Unknown]
  - Urinary tract infection [Unknown]

NARRATIVE: CASE EVENT DATE: 20151219
